FAERS Safety Report 6571453-8 (Version None)
Quarter: 2010Q1

REPORT INFORMATION
  Report Type: 
  Country: None (occurrence: None)
  Receive Date: 20100205
  Receipt Date: 20100129
  Transmission Date: 20100710
  Serious: Yes (Other)
  Sender: FDA-Public Use
  Company Number: US-ALLERGAN-1001252US

PATIENT
  Age: 74 Year
  Sex: Male

DRUGS (7)
  1. COMBIGAN [Suspect]
     Indication: INTRAOCULAR PRESSURE INCREASED
     Dosage: 1 GTT, BID
     Dates: start: 20100113, end: 20100118
  2. BESIVANCE [Suspect]
     Indication: PREOPERATIVE CARE
     Dosage: 1 GTT, QID
     Route: 047
     Dates: start: 20100110, end: 20100118
  3. DICLOFENAC [Suspect]
     Indication: PREOPERATIVE CARE
     Dosage: 1 GTT, QID
     Route: 047
     Dates: start: 20100110, end: 20100118
  4. DICLOFENAC [Suspect]
     Dosage: 1 GTT, UNK
     Route: 047
     Dates: start: 20100119, end: 20100121
  5. LOTEMAX [Suspect]
     Dosage: 1 GTT, QID
     Route: 047
     Dates: start: 20100112, end: 20100118
  6. LOTEMAX [Suspect]
     Dosage: 1 GTT, UNK
     Route: 047
     Dates: start: 20100119, end: 20100121
  7. ANAESTHESIA EYE DROPS (UNSPECIFIED) [Concomitant]
     Indication: ANAESTHESIA
     Route: 047

REACTIONS (2)
  - CORNEAL EPITHELIUM DEFECT [None]
  - MYDRIASIS [None]
